FAERS Safety Report 18289038 (Version 2)
Quarter: 2020Q4

REPORT INFORMATION
  Report Type: Spontaneous
  Country: MY (occurrence: MY)
  Receive Date: 20200921
  Receipt Date: 20201102
  Transmission Date: 20210113
  Serious: Yes (Hospitalization)
  Sender: FDA-Public Use
  Company Number: MY-JNJFOC-20200924259

PATIENT
  Age: 68 Year
  Sex: Male
  Weight: 80.3 kg

DRUGS (6)
  1. PREDNISONE. [Suspect]
     Active Substance: PREDNISONE
     Indication: PROSTATE CANCER
     Route: 048
     Dates: start: 20190827
  2. NIRAPARIB [Suspect]
     Active Substance: NIRAPARIB
     Indication: PROSTATE CANCER
     Route: 048
     Dates: start: 20190827
  3. PERINDOPRIL [Concomitant]
     Active Substance: PERINDOPRIL
  4. ATORVASTATIN [Concomitant]
     Active Substance: ATORVASTATIN
  5. GLICLAZIDE [Concomitant]
     Active Substance: GLICLAZIDE
  6. ZYTIGA [Suspect]
     Active Substance: ABIRATERONE ACETATE
     Indication: PROSTATE CANCER
     Route: 048
     Dates: start: 20190827

REACTIONS (3)
  - Vomiting [Recovered/Resolved]
  - Renal impairment [Recovered/Resolved]
  - Decreased appetite [Recovered/Resolved]

NARRATIVE: CASE EVENT DATE: 20190920
